FAERS Safety Report 11103523 (Version 3)
Quarter: 2017Q2

REPORT INFORMATION
  Report Type: Report from Study
  Country: US (occurrence: US)
  Receive Date: 20150511
  Receipt Date: 20170503
  Transmission Date: 20170829
  Serious: Yes (Life-Threatening, Other)
  Sender: FDA-Public Use
  Company Number: US-SA-2015SA061489

PATIENT
  Age: 68 Year
  Sex: Female

DRUGS (15)
  1. VALACICLOVIR [Concomitant]
     Active Substance: VALACYCLOVIR HYDROCHLORIDE
  2. CYMBALTA [Concomitant]
     Active Substance: DULOXETINE HYDROCHLORIDE
  3. VERAMYST [Concomitant]
     Active Substance: FLUTICASONE FUROATE
  4. FISH OIL [Concomitant]
     Active Substance: FISH OIL
  5. LOSARTAN. [Concomitant]
     Active Substance: LOSARTAN
  6. TYLENOL [Concomitant]
     Active Substance: ACETAMINOPHEN
  7. AUBAGIO [Suspect]
     Active Substance: TERIFLUNOMIDE
     Indication: MULTIPLE SCLEROSIS
     Dosage: START THERAPY: 8 MONTHS
     Route: 048
     Dates: start: 20141120
  8. ASPIRIN. [Concomitant]
     Active Substance: ASPIRIN
  9. CALCIUM [Concomitant]
     Active Substance: CALCIUM
  10. BACLOFEN. [Concomitant]
     Active Substance: BACLOFEN
  11. GABAPENTIN. [Concomitant]
     Active Substance: GABAPENTIN
  12. IRON [Concomitant]
     Active Substance: IRON
  13. VITAMIN D [Concomitant]
     Active Substance: CHOLECALCIFEROL
  14. PANTHENOL/RETINOL/THIAMINE HYDROCHLORIDE/ASCORBIC ACID/ERGOCALCIFEROL/FOLIC ACID/RIBOFLAVIN/NICOTINA [Concomitant]
  15. PEPCID [Concomitant]
     Active Substance: FAMOTIDINE

REACTIONS (5)
  - Speech disorder [Unknown]
  - Cerebrovascular accident [Recovered/Resolved]
  - Amnesia [Recovering/Resolving]
  - Urinary tract infection [Not Recovered/Not Resolved]
  - Condition aggravated [Recovering/Resolving]

NARRATIVE: CASE EVENT DATE: 2016
